FAERS Safety Report 11398760 (Version 1)
Quarter: 2015Q3

REPORT INFORMATION
  Report Type: Other
  Country: CA (occurrence: CA)
  Receive Date: 20150820
  Receipt Date: 20150820
  Transmission Date: 20151125
  Serious: Yes (Hospitalization)
  Sender: FDA-Public Use
  Company Number: CA-LUPIN PHARMACEUTICALS INC.-2015-02466

PATIENT
  Age: 77 Year
  Sex: Female

DRUGS (37)
  1. NITROGLYCERIN. [Suspect]
     Active Substance: NITROGLYCERIN
     Indication: ANGINA PECTORIS
     Dosage: 0.4 MG/SPRAY AS NEEDED
     Route: 065
  2. MORPHINE [Suspect]
     Active Substance: MORPHINE
     Indication: PAIN
     Dosage: 10 MG AT BEDTIME
     Route: 065
  3. OXAZEPAM. [Suspect]
     Active Substance: OXAZEPAM
     Indication: INSOMNIA
     Dosage: 15 MG AT BEDTIME
     Route: 065
  4. ROSUVASTATIN [Concomitant]
     Active Substance: ROSUVASTATIN
     Indication: CEREBROVASCULAR ACCIDENT
     Route: 065
     Dates: start: 2008
  5. QUINAPRIL [Suspect]
     Active Substance: QUINAPRIL\QUINAPRIL HYDROCHLORIDE
     Indication: CORONARY ARTERY DISEASE
     Dosage: 40 MG/DAY
     Route: 065
  6. ACEBUTOLOL [Suspect]
     Active Substance: ACEBUTOLOL
     Indication: CORONARY ARTERY DISEASE
     Route: 065
  7. DILTIAZEM HYDROCHLORIDE EXTENDED RELEASE [Suspect]
     Active Substance: DILTIAZEM HYDROCHLORIDE
     Indication: HYPERTENSION
  8. DILTIAZEM HYDROCHLORIDE EXTENDED RELEASE [Suspect]
     Active Substance: DILTIAZEM HYDROCHLORIDE
     Indication: ANGINA PECTORIS
  9. CYCLOBENZAPRINE [Suspect]
     Active Substance: CYCLOBENZAPRINE
     Dosage: 5 MG AT BEDTIME
     Route: 065
  10. GALANTAMINE ER [Concomitant]
     Active Substance: GALANTAMINE
     Indication: DEMENTIA
     Dosage: 16 MG/DAY
     Route: 065
  11. GLUCOSAMINE [Concomitant]
     Active Substance: GLUCOSAMINE
     Indication: PAIN
     Route: 065
  12. BISACODYL. [Concomitant]
     Active Substance: BISACODYL
     Indication: CONSTIPATION
     Dosage: 2 PILLS AS NEEDED
     Route: 065
  13. CRANBERRY. [Concomitant]
     Active Substance: CRANBERRY
     Indication: BLADDER DISORDER
     Route: 065
  14. ACEBUTOLOL [Suspect]
     Active Substance: ACEBUTOLOL
     Indication: ANGINA PECTORIS
  15. MAGNESIUM HYDROXIDE. [Suspect]
     Active Substance: MAGNESIUM HYDROXIDE
     Indication: CONSTIPATION
     Dosage: 1-2 TABLETS AT BEDTIME
     Route: 065
  16. TIOTROPIUM [Concomitant]
     Active Substance: TIOTROPIUM
     Indication: PRODUCT USED FOR UNKNOWN INDICATION
     Dosage: 18 MICROG/D
     Route: 065
  17. FUROSEMIDE. [Suspect]
     Active Substance: FUROSEMIDE
     Dosage: 10 MG/D
     Route: 065
  18. CARBAMAZEPINE. [Suspect]
     Active Substance: CARBAMAZEPINE
     Indication: PROPHYLAXIS
     Route: 065
  19. ROSUVASTATIN [Concomitant]
     Active Substance: ROSUVASTATIN
     Dosage: DOSE REDUCED
     Route: 065
  20. SALBUTAMOL [Concomitant]
     Active Substance: ALBUTEROL
     Indication: PRODUCT USED FOR UNKNOWN INDICATION
     Dosage: 100 MICROG/PUFF, 2 PUFFS FOUR TIMES DAILY IF NEEDED
     Route: 065
  21. LACTULOSE. [Concomitant]
     Active Substance: LACTULOSE
     Indication: CONSTIPATION
     Dosage: 15 ML/D AS NEEDED
     Route: 065
  22. FUROSEMIDE. [Suspect]
     Active Substance: FUROSEMIDE
     Indication: OEDEMA
     Dosage: 40 MG/D
     Route: 065
  23. AMLODIPINE [Suspect]
     Active Substance: AMLODIPINE BESYLATE
     Indication: CORONARY ARTERY DISEASE
     Dosage: 5 MG/DAY
     Route: 065
  24. ACEBUTOLOL [Suspect]
     Active Substance: ACEBUTOLOL
     Indication: HYPERTENSION
  25. DILTIAZEM HYDROCHLORIDE EXTENDED RELEASE [Suspect]
     Active Substance: DILTIAZEM HYDROCHLORIDE
     Indication: CORONARY ARTERY DISEASE
     Dosage: 360 MG/DAY
     Route: 065
  26. CARBAMAZEPINE. [Suspect]
     Active Substance: CARBAMAZEPINE
     Dosage: 100 MG/DAY
     Route: 065
  27. ACETAMINOPHEN. [Concomitant]
     Active Substance: ACETAMINOPHEN
     Indication: PAIN
     Dosage: 650 MG EVERY 4-6 HOURS AS NEEDED
     Route: 065
  28. QUINAPRIL [Suspect]
     Active Substance: QUINAPRIL\QUINAPRIL HYDROCHLORIDE
     Indication: HYPERTENSION
  29. AMLODIPINE [Suspect]
     Active Substance: AMLODIPINE BESYLATE
     Indication: CORONARY ARTERY DISEASE
  30. AMITRIPTYLINE [Suspect]
     Active Substance: AMITRIPTYLINE
     Indication: INSOMNIA
     Dosage: 75 MG AT BEDTIME
     Route: 065
  31. LEVOFLOXACIN. [Suspect]
     Active Substance: LEVOFLOXACIN
     Indication: URINARY TRACT INFECTION
     Dosage: 250 MG/D
     Route: 065
  32. LEVOTHYROXINE. [Concomitant]
     Active Substance: LEVOTHYROXINE
     Indication: RADIOACTIVE IODINE THERAPY
     Dosage: 0.088 MG/D
     Route: 065
  33. NITROGLYCERIN. [Suspect]
     Active Substance: NITROGLYCERIN
     Indication: CORONARY ARTERY DISEASE
     Dosage: 0.6 MG/H AT BED TIME
     Route: 065
  34. CYCLOBENZAPRINE [Suspect]
     Active Substance: CYCLOBENZAPRINE
     Indication: PAIN
     Route: 065
  35. DIPYRIDAMOLE/ASA [Concomitant]
     Indication: CEREBROVASCULAR ACCIDENT
     Dosage: 200/25 MG TWICE DAILY
     Route: 065
     Dates: start: 2008
  36. FIBRE [Concomitant]
     Indication: CONSTIPATION
     Route: 065
  37. OMEPRAZOLE. [Concomitant]
     Active Substance: OMEPRAZOLE
     Indication: DUODENAL ULCER
     Dosage: 20 MG/D
     Route: 065

REACTIONS (4)
  - Orthostatic hypotension [Unknown]
  - Hypotension [Unknown]
  - Fall [Recovered/Resolved]
  - Transcription medication error [Unknown]
